FAERS Safety Report 10353671 (Version 1)
Quarter: 2014Q3

REPORT INFORMATION
  Report Type: Spontaneous
  Country: US (occurrence: None)
  Receive Date: 20140729
  Receipt Date: 20140729
  Transmission Date: 20150326
  Serious: Yes (Death, Hospitalization)
  Sender: FDA-Public Use
  Company Number: None

PATIENT
  Age: 47 Year
  Sex: Male
  Weight: 63.5 kg

DRUGS (1)
  1. IMBRUVICA [Suspect]
     Active Substance: IBRUTINIB
     Indication: WALDENSTROM^S MACROGLOBULINAEMIA
     Route: 048
     Dates: start: 20140507, end: 20140617

REACTIONS (6)
  - Petechiae [None]
  - Depressed level of consciousness [None]
  - Cerebral haemorrhage [None]
  - Thrombocytopenia [None]
  - Headache [None]
  - Irritability [None]

NARRATIVE: CASE EVENT DATE: 20140617
